FAERS Safety Report 12602122 (Version 2)
Quarter: 2016Q3

REPORT INFORMATION
  Report Type: Spontaneous
  Country: US (occurrence: US)
  Receive Date: 20160728
  Receipt Date: 20160810
  Transmission Date: 20161109
  Serious: No
  Sender: FDA-Public Use
  Company Number: US-PFIZER INC-2016336194

PATIENT
  Age: 72 Year
  Sex: Male
  Weight: 97.46 kg

DRUGS (2)
  1. SUTENT [Suspect]
     Active Substance: SUNITINIB MALATE
     Dosage: UNK
     Dates: start: 20160624
  2. SUTENT [Suspect]
     Active Substance: SUNITINIB MALATE
     Indication: RENAL NEOPLASM
     Dosage: 50 MG, CYCLIC (DAY1-28) (DAY 1-28 Q42 DAYS)
     Route: 048
     Dates: start: 20160507

REACTIONS (6)
  - Dysphagia [Unknown]
  - Eating disorder [Unknown]
  - Rash [Not Recovered/Not Resolved]
  - Fall [Unknown]
  - Contusion [Unknown]
  - Vomiting [Unknown]

NARRATIVE: CASE EVENT DATE: 20160624
